FAERS Safety Report 10401797 (Version 1)
Quarter: 2014Q3

REPORT INFORMATION
  Report Type: Spontaneous
  Country: US (occurrence: US)
  Receive Date: 20140822
  Receipt Date: 20140822
  Transmission Date: 20150326
  Serious: Yes (Death)
  Sender: FDA-Public Use
  Company Number: US-UNITED THERAPEUTICS-UNT-2014-005914

PATIENT
  Sex: Male

DRUGS (1)
  1. TREPROSTINIL (INHALED) (TREPROSTINIL SODIUM (INHALED) INHALATION GAS [Suspect]
     Active Substance: TREPROSTINIL
     Indication: PRODUCT USED FOR UNKNOWN INDICATION
     Dosage: UNK
     Dates: start: 20120410, end: 20131208

REACTIONS (3)
  - Death [Fatal]
  - Circulatory collapse [None]
  - Fall [None]

NARRATIVE: CASE EVENT DATE: 2014
